FAERS Safety Report 26040390 (Version 1)
Quarter: 2025Q4

REPORT INFORMATION
  Report Type: Spontaneous
  Country: JP (occurrence: JP)
  Receive Date: 20251113
  Receipt Date: 20251113
  Transmission Date: 20260119
  Serious: Yes (Death)
  Sender: GENMAB
  Company Number: JP-GENMAB-2025-03604

PATIENT
  Age: 81 Year
  Sex: Male

DRUGS (1)
  1. EPKINLY [Suspect]
     Active Substance: EPCORITAMAB-BYSP
     Indication: Diffuse large B-cell lymphoma
     Dosage: UNK, UP TO CYCLE 1
     Route: 065

REACTIONS (1)
  - COVID-19 [Fatal]
